FAERS Safety Report 22355512 (Version 2)
Quarter: 2023Q2

REPORT INFORMATION
  Report Type: Spontaneous
  Country: SG (occurrence: None)
  Receive Date: 20230523
  Receipt Date: 20230614
  Transmission Date: 20230722
  Serious: Yes (Hospitalization)
  Sender: FDA-Public Use
  Company Number: 2023A116035

PATIENT

DRUGS (5)
  1. DAPAGLIFLOZIN [Suspect]
     Active Substance: DAPAGLIFLOZIN
     Indication: Type 2 diabetes mellitus
     Dosage: 10.0MG UNKNOWN
     Route: 048
  2. DAPAGLIFLOZIN [Suspect]
     Active Substance: DAPAGLIFLOZIN
     Indication: Renal impairment
     Dosage: 10.0MG UNKNOWN
     Route: 048
  3. TWYNSTA [Concomitant]
     Active Substance: AMLODIPINE BESYLATE\TELMISARTAN
     Dosage: 20.0MG UNKNOWN
  4. SIMVASTATIN [Concomitant]
     Active Substance: SIMVASTATIN
     Dosage: UNKNOWN
  5. METFORMIN [Concomitant]
     Active Substance: METFORMIN HYDROCHLORIDE
     Dosage: 850.0MG UNKNOWN

REACTIONS (2)
  - Dizziness [Recovered/Resolved]
  - Blood pressure increased [Recovered/Resolved]
